FAERS Safety Report 9400251 (Version 2)
Quarter: 2013Q3

REPORT INFORMATION
  Report Type: Spontaneous
  Country: US (occurrence: US)
  Receive Date: 20130715
  Receipt Date: 20130723
  Transmission Date: 20140515
  Serious: Yes (Other)
  Sender: FDA-Public Use
  Company Number: US-PFIZER INC-2013203281

PATIENT
  Age: 91 Year
  Sex: Female
  Weight: 59 kg

DRUGS (1)
  1. ESTRING [Suspect]
     Indication: HORMONE REPLACEMENT THERAPY
     Dosage: 2 MG, UNK
     Route: 067
     Dates: start: 2010, end: 20130705

REACTIONS (3)
  - Hearing impaired [Unknown]
  - Vulvovaginal pain [Unknown]
  - Drug ineffective [Unknown]
